FAERS Safety Report 15354383 (Version 11)
Quarter: 2019Q3

REPORT INFORMATION
  Report Type: Spontaneous
  Country: CA (occurrence: CA)
  Receive Date: 20180906
  Receipt Date: 20190927
  Transmission Date: 20191004
  Serious: Yes (Hospitalization, Other)
  Sender: FDA-Public Use
  Company Number: CA-CELLTRION INC.-2018CA018615

PATIENT

DRUGS (21)
  1. HYDROCORTISONE. [Concomitant]
     Active Substance: HYDROCORTISONE
     Indication: PREMEDICATION
     Dosage: 200 MG, UNK
     Route: 042
  2. INFLECTRA [Suspect]
     Active Substance: INFLIXIMAB-DYYB
     Dosage: 400 MG, (EVERY 0,2,6 WEEKS AND THEN EVERY 8 WEEKS)
     Route: 042
     Dates: start: 20190917
  3. METHOTREXATE SODIUM. [Concomitant]
     Active Substance: METHOTREXATE SODIUM
     Dosage: 15 MG, WEEKLY
     Route: 048
     Dates: start: 201704
  4. INFLECTRA [Suspect]
     Active Substance: INFLIXIMAB-DYYB
     Indication: CROHN^S DISEASE
     Dosage: 400 MG, (EVERY 0,2,6 WEEKS AND THEN EVERY 8 WEEKS)
     Route: 042
     Dates: start: 20180125, end: 20180125
  5. INFLECTRA [Suspect]
     Active Substance: INFLIXIMAB-DYYB
     Dosage: 400 MG, (EVERY 0,2,6 WEEKS AND THEN EVERY 8 WEEKS)
     Route: 042
     Dates: start: 20180628, end: 20180628
  6. INFLECTRA [Suspect]
     Active Substance: INFLIXIMAB-DYYB
     Dosage: 400 MG, (EVERY 0,2,6 WEEKS AND THEN EVERY 8 WEEKS)
     Route: 042
     Dates: start: 20190207, end: 20190207
  7. INFLECTRA [Suspect]
     Active Substance: INFLIXIMAB-DYYB
     Dosage: 400 MG, (EVERY 0,2,6 WEEKS AND THEN EVERY 8 WEEKS)
     Route: 042
     Dates: start: 20190725
  8. FOLIC ACID. [Concomitant]
     Active Substance: FOLIC ACID
     Dosage: 1 MG, 6 TIMES PER WEEK
     Route: 048
     Dates: start: 201704
  9. PENTASA [Concomitant]
     Active Substance: MESALAMINE
     Dosage: 1000 MG, 2X/DAY
     Route: 048
  10. VITAMIN B12 [Concomitant]
     Active Substance: CYANOCOBALAMIN
     Dosage: 1000 MG, 1X/DAY
     Route: 048
  11. INFLECTRA [Suspect]
     Active Substance: INFLIXIMAB-DYYB
     Dosage: 400 MG, (EVERY 0,2,6 WEEKS AND THEN EVERY 8 WEEKS)
     Route: 042
     Dates: start: 20180823, end: 20180823
  12. INFLECTRA [Suspect]
     Active Substance: INFLIXIMAB-DYYB
     Dosage: 400 MG, (EVERY 0,2,6 WEEKS AND THEN EVERY 8 WEEKS)
     Route: 042
     Dates: start: 20181213, end: 20181213
  13. INFLECTRA [Suspect]
     Active Substance: INFLIXIMAB-DYYB
     Dosage: 400 MG, (EVERY 0,2,6 WEEKS AND THEN EVERY 8 WEEKS)
     Route: 042
     Dates: start: 20190404
  14. PREDNISONE. [Concomitant]
     Active Substance: PREDNISONE
     Indication: CONDITION AGGRAVATED
     Dosage: 20 MG, 1X/DAY, AS NEEDED
     Route: 048
  15. INFLECTRA [Suspect]
     Active Substance: INFLIXIMAB-DYYB
     Dosage: 400 MG, (EVERY 0,2,6 WEEKS AND THEN EVERY 8 WEEKS)
     Route: 042
     Dates: start: 20181018, end: 20181018
  16. INFLECTRA [Suspect]
     Active Substance: INFLIXIMAB-DYYB
     Dosage: 400 MG, (EVERY 0,2,6 WEEKS AND THEN EVERY 8 WEEKS)
     Route: 042
     Dates: start: 20190530
  17. PREDNISONE. [Concomitant]
     Active Substance: PREDNISONE
     Dosage: AS NEEDED
  18. HYDROCORTISONE. [Concomitant]
     Active Substance: HYDROCORTISONE
     Dosage: 200 MG, UNK
     Route: 042
     Dates: start: 20190725
  19. INFLECTRA [Suspect]
     Active Substance: INFLIXIMAB-DYYB
     Dosage: 400 MG, (EVERY 0,2,6 WEEKS AND THEN EVERY 8 WEEKS)
     Route: 042
     Dates: start: 20180308, end: 20180308
  20. INFLECTRA [Suspect]
     Active Substance: INFLIXIMAB-DYYB
     Dosage: 400 MG, (EVERY 0,2,6 WEEKS AND THEN EVERY 8 WEEKS)
     Route: 042
     Dates: start: 20180503, end: 20180503
  21. PREDNISONE. [Concomitant]
     Active Substance: PREDNISONE
     Dosage: 20 MG, 1X/DAY (AS NEEDED)
     Route: 048
     Dates: start: 201709

REACTIONS (11)
  - Intestinal stenosis [Unknown]
  - Heart rate irregular [Unknown]
  - Abdominal pain [Recovering/Resolving]
  - Squamous cell carcinoma of skin [Unknown]
  - Headache [Not Recovered/Not Resolved]
  - Condition aggravated [Unknown]
  - Blood pressure fluctuation [Unknown]
  - Oropharyngeal discomfort [Not Recovered/Not Resolved]
  - Expired product administered [Unknown]
  - Small intestinal obstruction [Unknown]
  - Nasopharyngitis [Not Recovered/Not Resolved]

NARRATIVE: CASE EVENT DATE: 2018
